FAERS Safety Report 8366325-2 (Version None)
Quarter: 2012Q2

REPORT INFORMATION
  Report Type: 
  Country: None (occurrence: None)
  Receive Date: 20120517
  Receipt Date: 20120514
  Transmission Date: 20120825
  Serious: Yes (Death, Other)
  Sender: FDA-Public Use
  Company Number: PHHY2012JP020731

PATIENT
  Sex: Female
  Weight: 68 kg

DRUGS (9)
  1. ZOMETA [Suspect]
     Indication: METASTASES TO BONE
     Dosage: 4MG (PER ADMINISTRATION)
     Route: 041
     Dates: start: 20070404, end: 20110608
  2. ARIMIDEX [Concomitant]
     Route: 048
     Dates: start: 20070404, end: 20081203
  3. XELODA [Concomitant]
     Route: 048
     Dates: start: 20100824, end: 20101124
  4. ZOMETA [Suspect]
     Dosage: 4MG (PER ADMINISTRATION)
     Route: 041
     Dates: start: 20111102, end: 20120224
  5. AROMASIN [Concomitant]
     Route: 048
     Dates: start: 20081203
  6. FARESTON ^LAAKEFARMOS^ [Concomitant]
     Route: 048
     Dates: start: 20110112, end: 20110405
  7. FEMARA [Concomitant]
     Route: 048
     Dates: start: 20090401, end: 20100525
  8. AROMASIN [Concomitant]
     Route: 048
     Dates: end: 20100824
  9. NAVELBINE [Concomitant]
     Dosage: 40 MG, UNK
     Route: 042
     Dates: start: 20110425

REACTIONS (4)
  - CARDIO-RESPIRATORY ARREST [None]
  - PERIODONTITIS [None]
  - EXPOSED BONE IN JAW [None]
  - OSTEONECROSIS OF JAW [None]
